FAERS Safety Report 8801111 (Version 1)
Quarter: 2012Q4

REPORT INFORMATION
  Report Type: 
  Country: FR (occurrence: FR)
  Receive Date: 20120921
  Receipt Date: 20120921
  Transmission Date: 20130627
  Serious: Yes (Hospitalization)
  Sender: FDA-Public Use
  Company Number: FR-GLAXOSMITHKLINE-B0829768A

PATIENT
  Age: 61 None
  Sex: Male

DRUGS (8)
  1. ZELITREX [Suspect]
     Indication: PROPHYLAXIS
     Dosage: 500MG Per day
     Route: 065
     Dates: start: 20111107, end: 20111223
  2. AMOXICILLINE [Suspect]
     Indication: PROPHYLAXIS
     Dosage: 500MG Per day
     Route: 065
     Dates: start: 20111107
  3. VELCADE [Suspect]
     Indication: MULTIPLE MYELOMA
     Dates: start: 20111107
  4. REVLIMID [Suspect]
     Indication: MULTIPLE MYELOMA
     Dates: start: 20111107, end: 20111204
  5. DEXAMETHASONE [Suspect]
     Indication: PRODUCT USED FOR UNKNOWN INDICATION
     Dosage: 20MG Cyclic
     Dates: start: 20111107
  6. BACTRIM [Suspect]
     Indication: PROPHYLAXIS
     Route: 065
     Dates: start: 20111107
  7. LEDERFOLINE [Suspect]
     Indication: PROPHYLAXIS
     Route: 065
     Dates: start: 20111107
  8. INNOHEP [Suspect]
     Indication: PROPHYLAXIS
     Dosage: .35ML Per day
     Route: 058
     Dates: start: 20111107

REACTIONS (15)
  - Drug reaction with eosinophilia and systemic symptoms [Recovering/Resolving]
  - Rash maculo-papular [Recovering/Resolving]
  - Pyrexia [Recovered/Resolved]
  - General physical health deterioration [Recovered/Resolved]
  - Face oedema [Unknown]
  - Lip oedema [Unknown]
  - Diarrhoea [Unknown]
  - Cholestasis [Unknown]
  - Pancreatitis [Unknown]
  - Eosinophilia [Unknown]
  - Leukocytosis [Unknown]
  - Mononucleosis syndrome [Unknown]
  - Lymphocytosis [Unknown]
  - Hepatitis [Unknown]
  - Pruritus [Unknown]
